FAERS Safety Report 6868655-X (Version None)
Quarter: 2010Q3

REPORT INFORMATION
  Report Type: 
  Country: None (occurrence: None)
  Receive Date: 20100721
  Receipt Date: 20100721
  Transmission Date: 20110219
  Serious: Yes (Other)
  Sender: FDA-Public Use
  Company Number: None

PATIENT
  Sex: Female
  Weight: 75.2971 kg

DRUGS (1)
  1. ARIMIDEX [Suspect]
     Indication: BREAST CANCER
     Dosage: 10 MG DAILY PO
     Route: 048
     Dates: start: 20070720, end: 20100720

REACTIONS (2)
  - DRUG EFFECT DECREASED [None]
  - INSULIN-REQUIRING TYPE 2 DIABETES MELLITUS [None]
